FAERS Safety Report 10232455 (Version 1)
Quarter: 2014Q2

REPORT INFORMATION
  Report Type: Spontaneous
  Country: US (occurrence: US)
  Receive Date: 20140612
  Receipt Date: 20140612
  Transmission Date: 20141212
  Serious: No
  Sender: FDA-Public Use
  Company Number: US-JNJFOC-20140520063

PATIENT
  Age: 56 Year
  Sex: Female
  Weight: 79.38 kg

DRUGS (2)
  1. FENTANYL [Suspect]
     Indication: NECK PAIN
     Route: 062
     Dates: start: 201403
  2. FENTANYL [Suspect]
     Indication: BACK PAIN
     Route: 062
     Dates: start: 201403

REACTIONS (7)
  - Wrong technique in drug usage process [Unknown]
  - Product quality issue [Unknown]
  - Product adhesion issue [Unknown]
  - Application site perspiration [Unknown]
  - Drug ineffective [Unknown]
  - Product quality issue [Unknown]
  - Wrong technique in drug usage process [Unknown]
